FAERS Safety Report 6255001-8 (Version None)
Quarter: 2009Q3

REPORT INFORMATION
  Report Type: 
  Country: None (occurrence: None)
  Receive Date: 20090702
  Receipt Date: 20090622
  Transmission Date: 20100115
  Serious: Yes (Other)
  Sender: FDA-Public Use
  Company Number: US-ELI_LILLY_AND_COMPANY-US200906007147

PATIENT
  Sex: Female
  Weight: 117.91 kg

DRUGS (5)
  1. HUMALOG [Suspect]
     Indication: TYPE 2 DIABETES MELLITUS
     Route: 058
  2. ACTOS [Concomitant]
     Indication: TYPE 2 DIABETES MELLITUS
     Dosage: 15 MG, DAILY (1/D)
  3. IMODIUM [Concomitant]
     Indication: DIARRHOEA
     Dosage: UNK, AS NEEDED
  4. BYETTA [Concomitant]
     Indication: TYPE 2 DIABETES MELLITUS
     Dates: start: 20090620
  5. BYETTA [Concomitant]
     Dates: start: 20090530, end: 20090602

REACTIONS (11)
  - BLOOD GLUCOSE DECREASED [None]
  - BLOOD GLUCOSE INCREASED [None]
  - BLOOD POTASSIUM ABNORMAL [None]
  - DIARRHOEA [None]
  - GASTROINTESTINAL INFECTION [None]
  - HYPOGLYCAEMIC UNCONSCIOUSNESS [None]
  - INFREQUENT BOWEL MOVEMENTS [None]
  - NAUSEA [None]
  - PALPITATIONS [None]
  - VOMITING [None]
  - WEIGHT DECREASED [None]
